FAERS Safety Report 9783877 (Version 1)
Quarter: 2013Q4

REPORT INFORMATION
  Report Type: Spontaneous
  Country: US (occurrence: US)
  Receive Date: 20131226
  Receipt Date: 20131226
  Transmission Date: 20140711
  Serious: No
  Sender: FDA-Public Use
  Company Number: US-PFIZER INC-2013365238

PATIENT
  Age: 35 Year
  Sex: Male
  Weight: 72.56 kg

DRUGS (2)
  1. VIAGRA [Suspect]
     Indication: ERECTILE DYSFUNCTION
     Dosage: 100 MG, AS NEEDED
     Dates: start: 201311
  2. IBUPROFEN [Concomitant]
     Dosage: 300MG TO 400MG, AS NEEDED

REACTIONS (1)
  - Ejaculation disorder [Unknown]
